FAERS Safety Report 6782651-2 (Version None)
Quarter: 2010Q2

REPORT INFORMATION
  Report Type: 
  Country: None (occurrence: None)
  Receive Date: 20100616
  Receipt Date: 20100607
  Transmission Date: 20101027
  Serious: Yes (Hospitalization)
  Sender: FDA-Public Use
  Company Number: 2010AL003330

PATIENT
  Age: 52 Year
  Sex: Female

DRUGS (1)
  1. CARBAMAZEPINE [Suspect]
     Indication: MUSCULOSKELETAL PAIN

REACTIONS (8)
  - DEVICE RELATED INFECTION [None]
  - ENTEROBACTER TEST POSITIVE [None]
  - ENTEROCOLITIS INFECTIOUS [None]
  - ESCHERICHIA TEST POSITIVE [None]
  - THROMBOPHLEBITIS SEPTIC [None]
  - TOXIC EPIDERMAL NECROLYSIS [None]
  - VENOUS OCCLUSION [None]
  - WOUND INFECTION [None]
